FAERS Safety Report 4451225-0 (Version None)
Quarter: 2004Q3

REPORT INFORMATION
  Report Type: 
  Country: None (occurrence: None)
  Receive Date: 20040914
  Receipt Date: 20040826
  Transmission Date: 20050211
  Serious: Yes (Other)
  Sender: FDA-Public Use
  Company Number: B0343541A

PATIENT
  Sex: 0

DRUGS (2)
  1. NAVELBINE [Suspect]
     Indication: CARCINOMA
     Dosage: INTRAVENOUS BOLUS
     Route: 040
  2. PHENYTOIN [Suspect]
     Dosage: ORAL
     Route: 048

REACTIONS (1)
  - HYPERCALCAEMIA [None]
